FAERS Safety Report 10395279 (Version 2)
Quarter: 2014Q2

REPORT INFORMATION
  Report Type: Spontaneous
  Country: US (occurrence: None)
  Receive Date: 20130328
  Receipt Date: 20140604
  Transmission Date: 20141212
  Serious: Yes (Hospitalization)
  Sender: FDA-Public Use
  Company Number: 20120328CINRY2788

PATIENT
  Age: 31 Year
  Sex: Female

DRUGS (2)
  1. CINRYZE [Suspect]
     Indication: HEREDITARY ANGIOEDEMA
     Route: 042
     Dates: start: 20111116
  2. CINRYZE [Suspect]
     Route: 042
     Dates: start: 20111116

REACTIONS (4)
  - Hereditary angioedema [None]
  - Angioedema [None]
  - Stress [None]
  - Platelet count decreased [None]
